FAERS Safety Report 8561907-7 (Version None)
Quarter: 2012Q3

REPORT INFORMATION
  Report Type: 
  Country: None (occurrence: None)
  Receive Date: 20120802
  Receipt Date: 20120723
  Transmission Date: 20120928
  Serious: Yes (Death)
  Sender: FDA-Public Use
  Company Number: FR-FRI-1000037409

PATIENT
  Sex: Female

DRUGS (6)
  1. LASIX [Suspect]
     Indication: CARDIAC FAILURE CONGESTIVE
     Route: 048
     Dates: end: 20120510
  2. ALDALIX [Suspect]
     Indication: CARDIAC FAILURE CONGESTIVE
     Route: 048
     Dates: end: 20120510
  3. PREVISCAN [Suspect]
     Indication: ATRIAL FIBRILLATION
     Dosage: 10MG ALTERNATING WITH 5MG
     Route: 048
     Dates: end: 20120510
  4. DIGOXIN [Suspect]
     Indication: ATRIAL FIBRILLATION
     Route: 048
     Dates: end: 20120510
  5. NEBIVOLOL [Suspect]
     Indication: CARDIAC FAILURE
     Route: 048
     Dates: end: 20120510
  6. NITROGLYCERIN [Suspect]
     Indication: ANGINA PECTORIS
     Route: 062
     Dates: end: 20120510

REACTIONS (1)
  - SUBDURAL HAEMATOMA [None]
